FAERS Safety Report 13392040 (Version 1)
Quarter: 2017Q1

REPORT INFORMATION
  Report Type: Spontaneous
  Country: US (occurrence: US)
  Receive Date: 20170331
  Receipt Date: 20170331
  Transmission Date: 20170429
  Serious: No
  Sender: FDA-Public Use
  Company Number: US-BAYER-2017-061353

PATIENT
  Age: 19 Year
  Sex: Female

DRUGS (2)
  1. SKYLA [Suspect]
     Active Substance: LEVONORGESTREL
     Indication: MUSCLE SPASMS
     Dosage: 14 MCG/24HR, CONT
     Route: 015
     Dates: start: 20160627
  2. SKYLA [Suspect]
     Active Substance: LEVONORGESTREL
     Indication: MENSTRUATION IRREGULAR

REACTIONS (2)
  - Gastrointestinal pain [Unknown]
  - Off label use [None]

NARRATIVE: CASE EVENT DATE: 20160627
